FAERS Safety Report 9797504 (Version 2)
Quarter: 2014Q1

REPORT INFORMATION
  Report Type: Spontaneous
  Country: TR (occurrence: TR)
  Receive Date: 20140106
  Receipt Date: 20140113
  Transmission Date: 20141002
  Serious: Yes (Death, Life-Threatening)
  Sender: FDA-Public Use
  Company Number: PHHY2013TR152590

PATIENT
  Age: 89 Year
  Sex: Male
  Weight: 68 kg

DRUGS (5)
  1. EXELON PATCH [Suspect]
     Indication: DEMENTIA
     Dosage: 4.6 MG, (PATCH 5 MG) DAILY
     Route: 062
  2. EXELON PATCH [Suspect]
     Dosage: 9.5 MG, (PATCH 10 MG) DAILY
     Route: 062
  3. ANTIHYPERTENSIVE DRUGS [Concomitant]
     Dosage: UNK UKN, UNK
  4. ANTIBIOTICS [Concomitant]
     Dosage: UNK UKN, UNK
  5. ANTIARRHYTHMIC AGENTS [Concomitant]
     Dosage: UNK UKN, UNK

REACTIONS (2)
  - Cardiac arrest [Fatal]
  - Arrhythmia [Unknown]
